FAERS Safety Report 6800814-4 (Version None)
Quarter: 2010Q2

REPORT INFORMATION
  Report Type: 
  Country: None (occurrence: None)
  Receive Date: 20100629
  Receipt Date: 20100621
  Transmission Date: 20101027
  Serious: Yes (Death, Hospitalization)
  Sender: FDA-Public Use
  Company Number: JP-BAYER-200912229BYL

PATIENT
  Age: 82 Year
  Sex: Male
  Weight: 52 kg

DRUGS (10)
  1. NEXAVAR [Suspect]
     Indication: RENAL CELL CARCINOMA
     Dosage: TOTAL DAILY DOSE: 800 MG  UNIT DOSE: 200 MG
     Route: 048
     Dates: start: 20090129, end: 20090208
  2. NEXAVAR [Suspect]
     Dosage: UNIT DOSE: 200 MG
     Route: 048
     Dates: start: 20090209, end: 20090211
  3. NEXAVAR [Suspect]
     Dosage: UNIT DOSE: 200 MG
     Route: 048
     Dates: start: 20090407, end: 20090611
  4. HERBESSER [Concomitant]
     Route: 048
  5. FLUITRAN [Concomitant]
     Route: 048
  6. REMICUT [Concomitant]
     Route: 048
  7. DOXAZOSIN MESYLATE [Concomitant]
     Route: 048
  8. AMOBAN [Concomitant]
     Route: 048
  9. GASTER [Concomitant]
     Indication: PROPHYLAXIS
     Route: 048
  10. FERROMIA [Concomitant]
     Route: 048

REACTIONS (5)
  - MALAISE [None]
  - PALMAR-PLANTAR ERYTHRODYSAESTHESIA SYNDROME [None]
  - RASH [None]
  - RENAL CELL CARCINOMA [None]
  - STOMATITIS [None]
